FAERS Safety Report 6919538-8 (Version None)
Quarter: 2010Q3

REPORT INFORMATION
  Report Type: 
  Country: None (occurrence: None)
  Receive Date: 20100810
  Receipt Date: 20100810
  Transmission Date: 20110219
  Serious: Yes (Hospitalization)
  Sender: FDA-Public Use
  Company Number: None

PATIENT
  Age: 81 Year
  Sex: Male
  Weight: 79 kg

DRUGS (2)
  1. ATENOLOL [Suspect]
     Indication: HYPERTENSION
     Dosage: 50 MG EVERY DAY PO
     Route: 048
     Dates: start: 19960627, end: 20100804
  2. CLONIDINE [Suspect]
     Indication: HYPERTENSION
     Dosage: 0.3 MG TID PO
     Route: 048
     Dates: start: 19970610, end: 20100804

REACTIONS (1)
  - SYNCOPE [None]
